FAERS Safety Report 18176667 (Version 1)
Quarter: 2020Q3

REPORT INFORMATION
  Report Type: Spontaneous
  Country: GB (occurrence: GB)
  Receive Date: 20200820
  Receipt Date: 20200820
  Transmission Date: 20201103
  Serious: Yes (Other)
  Sender: FDA-Public Use
  Company Number: GB-JNJFOC-20200813526

PATIENT
  Age: 71 Year
  Sex: Male
  Weight: 150 kg

DRUGS (15)
  1. DIHYDROCODEINE [Concomitant]
     Active Substance: DIHYDROCODEINE
     Dosage: UP TO 3 TIMES A DAY; AS REQUIRED
     Dates: start: 20200217
  2. INVOKANA [Suspect]
     Active Substance: CANAGLIFLOZIN
     Indication: TYPE 2 DIABETES MELLITUS
     Route: 048
     Dates: start: 20190926
  3. DULAGLUTIDE. [Concomitant]
     Active Substance: DULAGLUTIDE
     Dosage: USE AS DIRECTED
     Dates: start: 20190926, end: 20200630
  4. AMOXICILLIN. [Concomitant]
     Active Substance: AMOXICILLIN
     Indication: INFECTION
     Dates: start: 20200612, end: 20200617
  5. AMITRIPTYLINE HYDROCHLORIDE. [Concomitant]
     Active Substance: AMITRIPTYLINE HYDROCHLORIDE
     Dosage: 1?2 TO BE TAKEN EACH NIGHT
     Dates: start: 20190926, end: 20200630
  6. BUMETANIDE. [Concomitant]
     Active Substance: BUMETANIDE
     Dosage: MORNING
     Dates: start: 20200723
  7. HUMALOG [Concomitant]
     Active Substance: INSULIN LISPRO
     Dosage: USE AS DIRECTED
     Dates: start: 20190926
  8. SIMVASTATIN. [Concomitant]
     Active Substance: SIMVASTATIN
     Dosage: AT NIGHT
     Dates: start: 20190926
  9. CITALOPRAM [Concomitant]
     Active Substance: CITALOPRAM HYDROBROMIDE
     Indication: DEPRESSED MOOD
     Dates: start: 20190926
  10. DIGOXIN. [Concomitant]
     Active Substance: DIGOXIN
     Indication: HEART RATE ABNORMAL
     Dates: start: 20190926, end: 20200609
  11. BISOPROLOL [Concomitant]
     Active Substance: BISOPROLOL
     Indication: CARDIAC FAILURE
     Dates: start: 20190926
  12. LANTUS [Concomitant]
     Active Substance: INSULIN GLARGINE
     Dosage: USE AS DIRECTED
     Dates: start: 20190926
  13. WARFARIN SODIUM. [Concomitant]
     Active Substance: WARFARIN SODIUM
     Indication: ATRIAL FIBRILLATION
     Dosage: AS DIRECTED
     Dates: start: 20190926
  14. METFORMIN [Concomitant]
     Active Substance: METFORMIN HYDROCHLORIDE
     Dates: start: 20190926
  15. TRULICITY [Concomitant]
     Active Substance: DULAGLUTIDE
     Dosage: USE AS DIRECTED
     Dates: start: 20200712

REACTIONS (3)
  - Cardiac failure [Unknown]
  - Abnormal weight gain [Unknown]
  - Fluid retention [Unknown]

NARRATIVE: CASE EVENT DATE: 20200723
